FAERS Safety Report 10057902 (Version 3)
Quarter: 2014Q2

REPORT INFORMATION
  Report Type: Spontaneous
  Country: JP (occurrence: JP)
  Receive Date: 20140404
  Receipt Date: 20140519
  Transmission Date: 20141212
  Serious: Yes (Life-Threatening, Hospitalization)
  Sender: FDA-Public Use
  Company Number: JP-ROCHE-1372009

PATIENT
  Age: 61 Year
  Sex: Female
  Weight: 56 kg

DRUGS (8)
  1. PERJETA [Suspect]
     Indication: BREAST CANCER RECURRENT
     Dosage: STRENGHTH: 420 MG/14ML
     Route: 041
     Dates: start: 20140213, end: 20140213
  2. PERJETA [Suspect]
     Route: 041
     Dates: start: 20140303, end: 20140303
  3. PERJETA [Suspect]
     Route: 041
     Dates: start: 20140324, end: 20140324
  4. HERCEPTIN [Suspect]
     Indication: BREAST CANCER RECURRENT
     Dosage: DOSAGE IS UNCERTAIN.
     Route: 041
     Dates: start: 20140213, end: 20140324
  5. ZOMETA [Suspect]
     Indication: METASTASES TO BONE
     Dosage: DOSAGE IS UNCERTAIN.
     Route: 041
     Dates: start: 20140210
  6. DOCETAXEL [Concomitant]
     Indication: BREAST CANCER RECURRENT
     Route: 041
     Dates: start: 20140213, end: 20140324
  7. TALION (JAPAN) [Concomitant]
     Dosage: DOSAGE IS UNCERTAIN.
     Route: 048
  8. THYRADIN-S [Concomitant]
     Indication: HYPOTHYROIDISM
     Dosage: DOSAGE IS UNCERTAIN.
     Route: 048

REACTIONS (1)
  - Shock [Recovering/Resolving]
